FAERS Safety Report 5071362-X (Version None)
Quarter: 2006Q3

REPORT INFORMATION
  Report Type: 
  Country: None (occurrence: None)
  Receive Date: 20060803
  Receipt Date: 20060803
  Transmission Date: 20061208
  Serious: Yes (Other)
  Sender: FDA-Public Use
  Company Number: None

PATIENT
  Age: 35 Year
  Sex: Male

DRUGS (5)
  1. SUPERDROL [Suspect]
     Dosage: 2 CAPSULES 20MG EACH X 7 DAYS; 3 CAPSULES X 7 DAYS; THEN 2 CAPS X 7 DAYS
     Dates: start: 20050826, end: 20050920
  2. ANADROL [Suspect]
     Dates: start: 20050624, end: 20050805
  3. STANOZOLOL [Concomitant]
  4. OXYMETHOLONE [Concomitant]
  5. VALERIAN ROOT [Concomitant]

REACTIONS (17)
  - ABDOMINAL TENDERNESS [None]
  - ALANINE AMINOTRANSFERASE INCREASED [None]
  - ASPARTATE AMINOTRANSFERASE INCREASED [None]
  - BILIRUBIN CONJUGATED INCREASED [None]
  - BLOOD ALKALINE PHOSPHATASE INCREASED [None]
  - BLOOD BILIRUBIN INCREASED [None]
  - CHROMATURIA [None]
  - HEPATOCELLULAR DAMAGE [None]
  - HEPATOMEGALY [None]
  - INTERVERTEBRAL DISC PROTRUSION [None]
  - JAUNDICE [None]
  - NAUSEA [None]
  - PROTEIN URINE PRESENT [None]
  - UROBILIN URINE [None]
  - UROBILIN URINE PRESENT [None]
  - VIRAL INFECTION [None]
  - VOMITING [None]
